FAERS Safety Report 7393432-3 (Version None)
Quarter: 2011Q2

REPORT INFORMATION
  Report Type: 
  Country: None (occurrence: None)
  Receive Date: 20110405
  Receipt Date: 20110328
  Transmission Date: 20111010
  Serious: Yes (Hospitalization)
  Sender: FDA-Public Use
  Company Number: US-ASTRAZENECA-2011SE17489

PATIENT
  Age: 788 Month
  Sex: Male

DRUGS (1)
  1. SEROQUEL [Suspect]
     Route: 048
     Dates: start: 20070110

REACTIONS (3)
  - ANGINA PECTORIS [None]
  - DIABETIC COMPLICATION [None]
  - OEDEMA PERIPHERAL [None]
